FAERS Safety Report 15851581 (Version 1)
Quarter: 2019Q1

REPORT INFORMATION
  Report Type: Spontaneous
  Country: US (occurrence: US)
  Receive Date: 20190122
  Receipt Date: 20190122
  Transmission Date: 20190417
  Serious: No
  Sender: FDA-Public Use
  Company Number: US-EMD SERONO-9065907

PATIENT
  Sex: Female

DRUGS (1)
  1. REBIF [Suspect]
     Active Substance: INTERFERON BETA-1A
     Indication: PRODUCT USED FOR UNKNOWN INDICATION
     Route: 058

REACTIONS (6)
  - Influenza like illness [Unknown]
  - Heart rate decreased [Unknown]
  - Nausea [Unknown]
  - Fall [Unknown]
  - Gait disturbance [Unknown]
  - Osteoporosis [Unknown]
